FAERS Safety Report 10230934 (Version 14)
Quarter: 2016Q3

REPORT INFORMATION
  Report Type: Spontaneous
  Country: US (occurrence: US)
  Receive Date: 20140611
  Receipt Date: 20160711
  Transmission Date: 20161109
  Serious: Yes (Hospitalization)
  Sender: FDA-Public Use
  Company Number: US-ACTELION-A-US2014-099878

PATIENT
  Age: 60 Year
  Sex: Female

DRUGS (7)
  1. OXYGEN. [Concomitant]
     Active Substance: OXYGEN
  2. VELETRI [Suspect]
     Active Substance: EPOPROSTENOL
     Indication: PULMONARY ARTERIAL HYPERTENSION
     Dosage: 41 NG/KG, PER MIN
     Route: 042
     Dates: start: 201007
  3. SILDENAFIL. [Concomitant]
     Active Substance: SILDENAFIL
  4. TRACLEER [Suspect]
     Active Substance: BOSENTAN
     Dosage: UNK
     Route: 048
  5. VELETRI [Suspect]
     Active Substance: EPOPROSTENOL
     Dosage: 40.5 NG/KG, PER MIN
     Route: 042
     Dates: start: 20100730
  6. TRACLEER [Suspect]
     Active Substance: BOSENTAN
     Indication: PULMONARY ARTERIAL HYPERTENSION
     Dosage: 125 MG, BID
     Route: 048
  7. COUMADIN [Concomitant]
     Active Substance: WARFARIN SODIUM

REACTIONS (13)
  - Renal failure [Recovered/Resolved]
  - Fluid overload [Recovered/Resolved]
  - Vomiting [Recovering/Resolving]
  - Right ventricular failure [Unknown]
  - Blood potassium increased [Recovered/Resolved]
  - Blood potassium decreased [Recovered/Resolved]
  - Hyperkalaemia [Recovered/Resolved]
  - Hepatic congestion [Recovering/Resolving]
  - Dyspnoea [Unknown]
  - Blood creatinine increased [Recovering/Resolving]
  - Nausea [Recovering/Resolving]
  - Blood sodium decreased [Unknown]
  - Cardiac failure [Unknown]

NARRATIVE: CASE EVENT DATE: 20140707
